FAERS Safety Report 13451070 (Version 1)
Quarter: 2017Q2

REPORT INFORMATION
  Report Type: Spontaneous
  Country: US (occurrence: US)
  Receive Date: 20170417
  Receipt Date: 20170417
  Transmission Date: 20170830
  Serious: No
  Sender: FDA-Public Use
  Company Number: None

PATIENT
  Age: 48 Year
  Sex: Female
  Weight: 103.5 kg

DRUGS (13)
  1. SPIRONOLACTONE. [Concomitant]
     Active Substance: SPIRONOLACTONE
  2. ATORVASTATIN [Concomitant]
     Active Substance: ATORVASTATIN
  3. LAMOTRIGINE 25 MG [Suspect]
     Active Substance: LAMOTRIGINE
     Indication: DISSOCIATIVE DISORDER
     Dosage: ?          QUANTITY:1 TABLET(S);?
     Route: 048
     Dates: start: 20170413, end: 20170415
  4. FLONASE [Concomitant]
     Active Substance: FLUTICASONE PROPIONATE
  5. LAMOTRIGINE 25 MG [Suspect]
     Active Substance: LAMOTRIGINE
     Indication: DEPRESSION
     Dosage: ?          QUANTITY:1 TABLET(S);?
     Route: 048
     Dates: start: 20170413, end: 20170415
  6. ALBUTEROL. [Concomitant]
     Active Substance: ALBUTEROL
  7. SYMBICORT [Concomitant]
     Active Substance: BUDESONIDE\FORMOTEROL FUMARATE DIHYDRATE
  8. MONTELUKAST SOD [Concomitant]
     Active Substance: MONTELUKAST SODIUM
  9. CLARITIN [Concomitant]
     Active Substance: LORATADINE
  10. LAMOTRIGINE 25 MG [Suspect]
     Active Substance: LAMOTRIGINE
     Indication: POST-TRAUMATIC STRESS DISORDER
     Dosage: ?          QUANTITY:1 TABLET(S);?
     Route: 048
     Dates: start: 20170413, end: 20170415
  11. EPIPEN [Concomitant]
     Active Substance: EPINEPHRINE
  12. SERTRALINE [Concomitant]
     Active Substance: SERTRALINE HYDROCHLORIDE
  13. CENTRUM ADULT CHEWABLE MULTIVITAMINS [Concomitant]

REACTIONS (4)
  - Blister [None]
  - Tongue blistering [None]
  - Ulcer [None]
  - Rash [None]

NARRATIVE: CASE EVENT DATE: 20170415
